FAERS Safety Report 4306932-7 (Version None)
Quarter: 2004Q1

REPORT INFORMATION
  Report Type: 
  Country: None (occurrence: None)
  Receive Date: 20040225
  Receipt Date: 20040205
  Transmission Date: 20041129
  Serious: Yes (Other)
  Sender: FDA-Public Use
  Company Number: FR_040203570

PATIENT
  Age: 73 Year
  Sex: Female

DRUGS (3)
  1. EVISTA [Suspect]
     Indication: OSTEOPOROSIS
     Dosage: 60 MG/DAY
     Dates: start: 20011201, end: 20030801
  2. LESCOL [Concomitant]
  3. PROPRANOLOL [Concomitant]

REACTIONS (1)
  - APHASIA [None]
